FAERS Safety Report 17572062 (Version 1)
Quarter: 2020Q1

REPORT INFORMATION
  Report Type: Spontaneous
  Country: US (occurrence: US)
  Receive Date: 20200323
  Receipt Date: 20200323
  Transmission Date: 20200409
  Serious: Yes (Other)
  Sender: FDA-Public Use
  Company Number: US-ROCHE-2566461

PATIENT

DRUGS (1)
  1. AVASTIN [Suspect]
     Active Substance: BEVACIZUMAB
     Indication: HEPATIC CANCER
     Route: 065

REACTIONS (6)
  - Dyspnoea [Unknown]
  - Intentional product use issue [Unknown]
  - Throat tightness [Unknown]
  - Hyperhidrosis [Unknown]
  - Hypotension [Unknown]
  - Off label use [Unknown]
